FAERS Safety Report 7495415-1 (Version None)
Quarter: 2011Q2

REPORT INFORMATION
  Report Type: 
  Country: None (occurrence: None)
  Receive Date: 20110513
  Receipt Date: 20110503
  Transmission Date: 20111010
  Serious: Yes (Death)
  Sender: FDA-Public Use
  Company Number: 008885

PATIENT
  Age: 75 Year
  Sex: Male

DRUGS (4)
  1. EPANUTIN UNK (PHENYTOIN SODIUM) [Concomitant]
  2. SAMSCA [Suspect]
     Indication: HYPONATRAEMIA
     Dosage: 15 MG MILLIGRAM(S), QD ORAL, 30 MG MILLIGRAM(S) ; ORAL
     Route: 048
     Dates: start: 20091030, end: 20091130
  3. OMEPRAZOLE [Concomitant]
  4. LISINOPRIL [Concomitant]

REACTIONS (4)
  - DISORIENTATION [None]
  - MUSCULAR WEAKNESS [None]
  - HEPATITIS [None]
  - METASTASES TO LIVER [None]
